FAERS Safety Report 12968599 (Version 2)
Quarter: 2016Q4

REPORT INFORMATION
  Report Type: Other
  Country: KR (occurrence: KR)
  Receive Date: 20161123
  Receipt Date: 20161222
  Transmission Date: 20170207
  Serious: Yes (Hospitalization)
  Sender: FDA-Public Use
  Company Number: KR-CELLTRION HEALTHCARE HUNGARY KFT-2016KR012153

PATIENT

DRUGS (28)
  1. REMSIMA [Suspect]
     Active Substance: INFLIXIMAB
     Indication: CROHN^S DISEASE
     Dosage: 5 MG/KG, SINGLE
     Route: 042
     Dates: start: 20161014, end: 20161014
  2. AZATHIOPRINE. [Concomitant]
     Active Substance: AZATHIOPRINE
     Dosage: 25 MG, BID
     Route: 048
     Dates: start: 20161208
  3. ISONIAZID ACID HYDRAZIDE [Concomitant]
     Dosage: 300 MG, QD
     Route: 048
     Dates: start: 20161208
  4. FEMI [Concomitant]
     Indication: NUTRITIONAL SUPPLEMENTATION
     Dosage: 1081 ML, BID
     Route: 042
     Dates: start: 20161129, end: 20161201
  5. TRAMADOL                           /00599202/ [Concomitant]
     Active Substance: TRAMADOL
     Indication: PROPHYLAXIS
     Dosage: 1 AMPULE
     Route: 042
     Dates: start: 20161123, end: 20161123
  6. OMAPREN                            /00661201/ [Concomitant]
     Indication: NUTRITIONAL SUPPLEMENTATION
     Dosage: 500 ML, BID
     Route: 042
     Dates: start: 20161117, end: 20161121
  7. PAN-MIST [Concomitant]
     Indication: NUTRITIONAL SUPPLEMENTATION
     Dosage: 1000 ML, UNK
     Route: 042
     Dates: start: 20161115, end: 20161115
  8. FEMI [Concomitant]
     Dosage: 1081 ML, DAILY
     Route: 042
     Dates: start: 20161202, end: 20161203
  9. REMSIMA [Suspect]
     Active Substance: INFLIXIMAB
     Dosage: 5 MG/KG, SINGLE
     Route: 042
     Dates: start: 20161028, end: 20161028
  10. WINPRED [Concomitant]
     Active Substance: PREDNISONE
     Indication: NUTRITIONAL SUPPLEMENTATION
     Dosage: 145 ML, UNK
     Route: 042
     Dates: start: 20161111, end: 20161114
  11. ISONIAZID ACID HYDRAZIDE [Concomitant]
     Indication: TUBERCULOSIS
     Dosage: 300 MG, QD
     Route: 048
     Dates: start: 20161028, end: 20161111
  12. RIFAMPICIN [Concomitant]
     Active Substance: RIFAMPIN
     Indication: TUBERCULOSIS
     Dosage: 600 MG, QD
     Route: 048
     Dates: start: 20161028, end: 20161111
  13. RANITIDINE. [Concomitant]
     Active Substance: RANITIDINE
     Dosage: 1 AMPULE
     Route: 042
     Dates: start: 20161123, end: 20161202
  14. ACETYLCYSTEINE. [Concomitant]
     Active Substance: ACETYLCYSTEINE
     Dosage: 4 ML, INHALANT
     Dates: start: 20161129, end: 20161204
  15. AZATHIOPRINE. [Concomitant]
     Active Substance: AZATHIOPRINE
     Indication: CROHN^S DISEASE
     Dosage: 25 MG, BID
     Route: 048
     Dates: start: 20161028, end: 20161111
  16. RANITIDINE. [Concomitant]
     Active Substance: RANITIDINE
     Dosage: 1 AMPULE
     Route: 048
     Dates: start: 20161208, end: 20161208
  17. NUTRIFLEX                          /07393601/ [Concomitant]
     Indication: NUTRITIONAL SUPPLEMENTATION
     Dosage: 1875 ML, UNK
     Route: 042
     Dates: start: 20161123, end: 20161128
  18. PETHIDINE [Concomitant]
     Active Substance: MEPERIDINE
     Indication: PROPHYLAXIS
     Dosage: 1 AMPULE
     Route: 030
     Dates: start: 20161115, end: 20161115
  19. TRAMADOL                           /00599202/ [Concomitant]
     Active Substance: TRAMADOL
     Dosage: 1 AMPULE
     Route: 042
     Dates: start: 20161129, end: 20161130
  20. GARAMICIN [Concomitant]
     Active Substance: GENTAMICIN SULFATE
     Indication: PROPHYLAXIS
     Dosage: 1 OTHER EA
     Route: 062
     Dates: start: 20161205, end: 20161206
  21. REMSIMA [Suspect]
     Active Substance: INFLIXIMAB
     Dosage: 5 MG/KG, SINGLE
     Route: 042
     Dates: start: 20161207, end: 20161207
  22. MESALAZINE [Concomitant]
     Active Substance: MESALAMINE
     Indication: CROHN^S DISEASE
     Dosage: 2 G, BID
     Route: 048
     Dates: start: 2016
  23. RANITIDINE. [Concomitant]
     Active Substance: RANITIDINE
     Indication: PROPHYLAXIS
     Dosage: 1 AMPULE
     Route: 042
     Dates: start: 20161115, end: 20161115
  24. PETHIDINE [Concomitant]
     Active Substance: MEPERIDINE
     Dosage: 1 AMPULE
     Route: 030
     Dates: start: 20161129, end: 20161129
  25. RIFAMPICIN [Concomitant]
     Active Substance: RIFAMPIN
     Dosage: 600 MG, QD
     Route: 048
     Dates: start: 20161208
  26. TENELIGLIPTIN/METFORMIN [Concomitant]
     Indication: DIABETES MELLITUS
     Dosage: 1 TABLET
     Route: 048
     Dates: end: 20161111
  27. RANITIDINE. [Concomitant]
     Active Substance: RANITIDINE
     Dosage: 1 AMPULE
     Route: 042
     Dates: start: 20161120, end: 20161120
  28. ACETYLCYSTEINE. [Concomitant]
     Active Substance: ACETYLCYSTEINE
     Indication: PROPHYLAXIS
     Dosage: 4 ML, INHALANT
     Dates: start: 20161115, end: 20161118

REACTIONS (1)
  - Small intestinal obstruction [Recovered/Resolved]

NARRATIVE: CASE EVENT DATE: 20161013
